FAERS Safety Report 4672850-8 (Version None)
Quarter: 2005Q2

REPORT INFORMATION
  Report Type: 
  Country: None (occurrence: None)
  Receive Date: 20050524
  Receipt Date: 20050516
  Transmission Date: 20051028
  Serious: Yes (Other)
  Sender: FDA-Public Use
  Company Number: PHEH2005US05560

PATIENT
  Sex: Female

DRUGS (2)
  1. STEROIDS NOS [Concomitant]
     Dosage: 4 DAYS EVERY 6 WEEKS
  2. ZOMETA [Suspect]
     Dosage: 4 UNSPECIFIED

REACTIONS (1)
  - ASEPTIC NECROSIS BONE [None]
